FAERS Safety Report 24900291 (Version 1)
Quarter: 2025Q1

REPORT INFORMATION
  Report Type: Spontaneous
  Country: US (occurrence: US)
  Receive Date: 20250129
  Receipt Date: 20250129
  Transmission Date: 20250409
  Serious: Yes (Hospitalization)
  Sender: AMGEN
  Company Number: US-AMGEN-USASP2025010647

PATIENT
  Sex: Female

DRUGS (3)
  1. PREDNISONE [Suspect]
     Active Substance: PREDNISONE
     Indication: Thrombotic thrombocytopenic purpura
     Dosage: 20 MILLIGRAM, QD
     Route: 063
  2. PREDNISONE [Suspect]
     Active Substance: PREDNISONE
     Indication: Still^s disease
  3. RITUXIMAB [Suspect]
     Active Substance: RITUXIMAB
     Indication: Thrombotic thrombocytopenic purpura
     Dosage: 375 MILLIGRAM/SQ. METER, QWK ,(4 WEEKLY DOSES)
     Route: 063

REACTIONS (11)
  - Acute kidney injury [Unknown]
  - Microangiopathic haemolytic anaemia [Unknown]
  - Thrombotic thrombocytopenic purpura [Unknown]
  - Epistaxis [Unknown]
  - Subdural haematoma [Unknown]
  - Mental impairment [Unknown]
  - Anaphylactic reaction [Unknown]
  - Unresponsive to stimuli [Unknown]
  - Alopecia [Unknown]
  - Maternal exposure during breast feeding [Unknown]
  - Off label use [Unknown]
